FAERS Safety Report 7937293-X (Version None)
Quarter: 2011Q4

REPORT INFORMATION
  Report Type: 
  Country: None (occurrence: None)
  Receive Date: 20111123
  Receipt Date: 20111121
  Transmission Date: 20120403
  Serious: Yes (Other)
  Sender: FDA-Public Use
  Company Number: US-PFIZER INC-2011185125

PATIENT
  Sex: Female
  Weight: 81.633 kg

DRUGS (2)
  1. CHANTIX [Suspect]
     Indication: SMOKING CESSATION THERAPY
     Dosage: 0.5 MG, DAILY
     Route: 048
     Dates: start: 20110401, end: 20110401
  2. CHANTIX [Suspect]
     Dosage: UNK
     Dates: start: 20110101

REACTIONS (11)
  - DEPRESSION [None]
  - VOMITING [None]
  - MEMORY IMPAIRMENT [None]
  - TOXICITY TO VARIOUS AGENTS [None]
  - LOSS OF CONSCIOUSNESS [None]
  - NAUSEA [None]
  - DIARRHOEA [None]
  - GASTROINTESTINAL DISORDER [None]
  - HEADACHE [None]
  - ABNORMAL BEHAVIOUR [None]
  - INSOMNIA [None]
